FAERS Safety Report 18524552 (Version 2)
Quarter: 2021Q1

REPORT INFORMATION
  Report Type: Report from Study
  Country: None (occurrence: US)
  Receive Date: 20201120
  Receipt Date: 20210211
  Transmission Date: 20210419
  Serious: Yes (Other)
  Sender: FDA-Public Use
  Company Number: US-ABBVIE-20K-163-3567880-00

PATIENT
  Sex: Male

DRUGS (8)
  1. VENCLEXTA [Suspect]
     Active Substance: VENETOCLAX
     Dosage: DAY 2
     Route: 048
     Dates: start: 2020, end: 2020
  2. XOSPATA [Concomitant]
     Active Substance: GILTERITINIB
     Indication: CHRONIC MYELOMONOCYTIC LEUKAEMIA
     Route: 048
     Dates: start: 20200820, end: 20200913
  3. VENCLEXTA [Suspect]
     Active Substance: VENETOCLAX
     Indication: CHRONIC MYELOMONOCYTIC LEUKAEMIA
     Dosage: DAY 1
     Route: 048
     Dates: start: 20200623, end: 2020
  4. VENCLEXTA [Suspect]
     Active Substance: VENETOCLAX
     Dosage: DAY 3
     Route: 048
     Dates: start: 2020, end: 2020
  5. VENCLEXTA [Suspect]
     Active Substance: VENETOCLAX
     Route: 048
     Dates: start: 2020
  6. VENCLEXTA [Suspect]
     Active Substance: VENETOCLAX
     Dosage: DAY 4
     Route: 048
     Dates: start: 2020, end: 20200914
  7. XOSPATA [Concomitant]
     Active Substance: GILTERITINIB
     Route: 048
     Dates: start: 20200914, end: 20200914
  8. XOSPATA [Concomitant]
     Active Substance: GILTERITINIB
     Route: 048
     Dates: start: 20200915, end: 20200915

REACTIONS (6)
  - Off label use [Unknown]
  - Chronic myelomonocytic leukaemia [Unknown]
  - Fluid intake reduced [Unknown]
  - Haemoglobin abnormal [Unknown]
  - Neutrophil count decreased [Unknown]
  - Asthenia [Unknown]

NARRATIVE: CASE EVENT DATE: 2020
